FAERS Safety Report 12600439 (Version 1)
Quarter: 2016Q3

REPORT INFORMATION
  Report Type: Spontaneous
  Country: US (occurrence: US)
  Receive Date: 20160727
  Receipt Date: 20160727
  Transmission Date: 20161109
  Serious: Yes (Other)
  Sender: FDA-Public Use
  Company Number: US-ASTRAZENECA-2016SE79273

PATIENT
  Sex: Female

DRUGS (2)
  1. PRILOSEC OTC [Suspect]
     Active Substance: OMEPRAZOLE MAGNESIUM
     Route: 048
  2. PRILOSEC [Suspect]
     Active Substance: OMEPRAZOLE MAGNESIUM
     Route: 048

REACTIONS (7)
  - Abdominal pain upper [Unknown]
  - No adverse event [Unknown]
  - Headache [Unknown]
  - Bone pain [Unknown]
  - Product use issue [Unknown]
  - Laryngeal disorder [Unknown]
  - Tympanic membrane disorder [Unknown]
